FAERS Safety Report 19878545 (Version 2)
Quarter: 2021Q4

REPORT INFORMATION
  Report Type: Spontaneous
  Country: US (occurrence: US)
  Receive Date: 20210923
  Receipt Date: 20211006
  Transmission Date: 20220303
  Serious: Yes (Hospitalization)
  Sender: FDA-Public Use
  Company Number: US-LUNDBECK-DKLU3038864

PATIENT
  Age: 73 Year
  Sex: Male

DRUGS (2)
  1. NORTHERA [Suspect]
     Active Substance: DROXIDOPA
     Indication: Parkinson^s disease
     Route: 048
     Dates: start: 201909
  2. DUOPA [Suspect]
     Active Substance: CARBIDOPA\LEVODOPA
     Indication: Parkinson^s disease
     Dosage: ADMINISTER CONTENTS OF 2 CASSETTES VIA PEG-J FOR UP TO 16 HOURS EACH DAY; MORNING DOSE: 8ML, CONTINU
     Route: 048
     Dates: start: 20201014

REACTIONS (7)
  - Subdural haematoma [Unknown]
  - Extradural haematoma [Unknown]
  - Cerebral haemorrhage [Unknown]
  - Intracranial pressure increased [Unknown]
  - Seizure [Unknown]
  - Mental impairment [Unknown]
  - Fall [Unknown]

NARRATIVE: CASE EVENT DATE: 20210821
